FAERS Safety Report 7375329 (Version 2)
Quarter: 2014Q1

REPORT INFORMATION
  Report Type: Report from Study
  Country: US (occurrence: US)
  Receive Date: 20100503
  Receipt Date: 20140303
  Transmission Date: 20141002
  Serious: No
  Sender: FDA-Public Use
  Company Number: US-ASTRAZENECA-2009SE19218

PATIENT
  Age: 82 Year
  Sex: Female
  Weight: 49.9 kg

DRUGS (1)
  1. NEXIUM [Suspect]
     Indication: HYPERCHLORHYDRIA
     Route: 048
     Dates: end: 201402

REACTIONS (3)
  - Ulcer [Unknown]
  - Intentional drug misuse [Unknown]
  - Drug dose omission [Unknown]
